FAERS Safety Report 13260578 (Version 1)
Quarter: 2017Q1

REPORT INFORMATION
  Report Type: Spontaneous
  Country: GB (occurrence: GB)
  Receive Date: 20170222
  Receipt Date: 20170222
  Transmission Date: 20170428
  Serious: Yes (Other)
  Sender: FDA-Public Use
  Company Number: GB-B. BRAUN MEDICAL INC.-1063438

PATIENT
  Age: 72 Year
  Sex: Female
  Weight: 80 kg

DRUGS (6)
  1. CANDESARTAN CILEXETIL. [Concomitant]
     Active Substance: CANDESARTAN CILEXETIL
  2. TRIAMCINOLONE ACETONIDE. [Suspect]
     Active Substance: TRIAMCINOLONE ACETONIDE
     Route: 051
     Dates: start: 20160705, end: 20160705
  3. PARACETAMOL [Concomitant]
     Active Substance: ACETAMINOPHEN
  4. THEICAL-D3 [Concomitant]
  5. LIDOCAINE. [Suspect]
     Active Substance: LIDOCAINE
     Route: 051
     Dates: start: 20160705, end: 20160705
  6. TRAMADOL HYDROCHLORIDE. [Concomitant]
     Active Substance: TRAMADOL HYDROCHLORIDE

REACTIONS (1)
  - Hemiparesis [Not Recovered/Not Resolved]
